FAERS Safety Report 10486763 (Version 1)
Quarter: 2014Q3

REPORT INFORMATION
  Report Type: Spontaneous
  Country: US (occurrence: None)
  Receive Date: 20140930
  Receipt Date: 20140930
  Transmission Date: 20150326
  Serious: No
  Sender: FDA-Public Use
  Company Number: None

PATIENT
  Age: 53 Year
  Sex: Male
  Weight: 97.6 kg

DRUGS (1)
  1. PREGABALIN. [Suspect]
     Active Substance: PREGABALIN
     Indication: PAIN
     Dosage: 75 MG?UD?PO
     Route: 048
     Dates: start: 20140617, end: 20140701

REACTIONS (4)
  - Euphoric mood [None]
  - Delirium [None]
  - Depression [None]
  - Confusional state [None]

NARRATIVE: CASE EVENT DATE: 20140701
